FAERS Safety Report 8396356 (Version 2)
Quarter: 2013Q2

REPORT INFORMATION
  Report Type: Spontaneous
  Country: GB (occurrence: None)
  Receive Date: 20120126
  Receipt Date: 20130425
  Transmission Date: 20140414
  Serious: Yes (Hospitalization)
  Sender: FDA-Public Use
  Company Number: GB-021492

PATIENT
  Age: 82 Year
  Sex: Male
  Weight: 79.6 kg

DRUGS (3)
  1. CHLORAMBUCIL (CHLORAMBUCIL) (UNKNOWN) [Suspect]
     Indication: CHRONIC LYMPHOCYTIC LEUKAEMIA
     Dosage: 10 MG/M2 DAYS 1-7 EVERY 28 DAYS, ORAL
     Route: 048
     Dates: start: 20100924
  2. OFATUMUMAB (OFATUMUMAB) (UNKNOWN) [Suspect]
     Indication: CHRONIC LYMPHOCYTIC LEUKAEMIA
     Dosage: DAY 1,(CYCLICAL)  INTRAVENOUS (NOT OTHERWISE SPECIFIED)
     Route: 042
     Dates: start: 20100923
  3. PHENYTOIN (PHENYTOIN) [Concomitant]

REACTIONS (6)
  - DIZZINESS [None]
  - TREMOR [None]
  - COGNITIVE DISORDER [None]
  - MEMORY IMPAIRMENT [None]
  - PROTEINURIA [None]
  - C-REACTIVE PROTEIN INCREASED [None]
